FAERS Safety Report 19714514 (Version 1)
Quarter: 2021Q3

REPORT INFORMATION
  Report Type: Spontaneous
  Country: JP (occurrence: JP)
  Receive Date: 20210818
  Receipt Date: 20210818
  Transmission Date: 20211014
  Serious: Yes (Hospitalization)
  Sender: FDA-Public Use
  Company Number: JP-ROCHE-2891573

PATIENT
  Age: 81 Year
  Sex: Female

DRUGS (5)
  1. FLUTIFORM [Suspect]
     Active Substance: FLUTICASONE PROPIONATE\FORMOTEROL FUMARATE
     Indication: ASTHMA
     Dosage: 1000 UG, BID
     Route: 055
     Dates: start: 20201203
  2. SPIRIVA [Suspect]
     Active Substance: TIOTROPIUM BROMIDE MONOHYDRATE
     Indication: ASTHMA
     Dosage: 2 DF
     Route: 048
     Dates: start: 20201203
  3. MONTELUKAST [Concomitant]
     Active Substance: MONTELUKAST SODIUM
     Indication: ASTHMA
     Dosage: 10 MG
     Route: 048
     Dates: start: 20201203
  4. RUPAFIN [Suspect]
     Active Substance: RUPATADINE FUMARATE
     Indication: RHINITIS
     Dosage: 10 MG
     Route: 048
     Dates: start: 20210329
  5. XOLAIR [Suspect]
     Active Substance: OMALIZUMAB
     Indication: ASTHMA
     Dosage: 600 MG
     Route: 058
     Dates: start: 20210201, end: 20210329

REACTIONS (6)
  - Therapeutic product effect incomplete [Unknown]
  - Eosinophil count increased [Recovering/Resolving]
  - Rhinitis [Unknown]
  - Wheezing [Recovering/Resolving]
  - Asthma [Recovering/Resolving]
  - Dyspnoea [Recovering/Resolving]

NARRATIVE: CASE EVENT DATE: 20210331
